FAERS Safety Report 20044440 (Version 1)
Quarter: 2021Q4

REPORT INFORMATION
  Report Type: Spontaneous
  Country: US (occurrence: US)
  Receive Date: 20211108
  Receipt Date: 20211108
  Transmission Date: 20220303
  Serious: Yes (Hospitalization)
  Sender: FDA-Public Use
  Company Number: US-BoehringerIngelheim-2021-BI-136717

PATIENT
  Age: 70 Year
  Sex: Female

DRUGS (1)
  1. COMBIVENT [Suspect]
     Active Substance: ALBUTEROL SULFATE\IPRATROPIUM BROMIDE
     Indication: Chronic obstructive pulmonary disease
     Dosage: 1 SPRAY 4 TIMES A DAY
     Route: 065
     Dates: start: 2018

REACTIONS (5)
  - COVID-19 [Unknown]
  - Medication error [Unknown]
  - Dyspnoea [Not Recovered/Not Resolved]
  - Chronic obstructive pulmonary disease [Not Recovered/Not Resolved]
  - Candida infection [Not Recovered/Not Resolved]

NARRATIVE: CASE EVENT DATE: 20201201
